FAERS Safety Report 9526318 (Version 2)
Quarter: 2013Q4

REPORT INFORMATION
  Report Type: Report from Study
  Country: DE (occurrence: DE)
  Receive Date: 20130916
  Receipt Date: 20131004
  Transmission Date: 20140711
  Serious: Yes (Hospitalization, Other)
  Sender: FDA-Public Use
  Company Number: DE-BRISTOL-MYERS SQUIBB COMPANY-19366350

PATIENT
  Age: 81 Year
  Sex: Female

DRUGS (1)
  1. IPILIMUMAB [Suspect]
     Indication: MALIGNANT MELANOMA
     Dosage: 1 DF= 180 NO UNITS?3MG/KG
     Dates: start: 20130829

REACTIONS (3)
  - Conjunctivitis [Recovered/Resolved with Sequelae]
  - Lymphocyte count decreased [Recovered/Resolved]
  - Hypertension [Recovered/Resolved]
